FAERS Safety Report 4353851-6 (Version None)
Quarter: 2004Q2

REPORT INFORMATION
  Report Type: 
  Country: None (occurrence: None)
  Receive Date: 20040506
  Receipt Date: 20040422
  Transmission Date: 20050107
  Serious: Yes (Other)
  Sender: FDA-Public Use
  Company Number: 200411507JP

PATIENT
  Sex: 0

DRUGS (2)
  1. TAXOTERE [Suspect]
     Indication: BREAST CANCER
     Route: 041
  2. RADIATION [Concomitant]
     Indication: BREAST CANCER

REACTIONS (5)
  - ALOPECIA [None]
  - PNEUMONIA [None]
  - RADIATION INJURY [None]
  - RADIATION SKIN INJURY [None]
  - WHITE BLOOD CELL COUNT DECREASED [None]
